FAERS Safety Report 23632014 (Version 1)
Quarter: 2024Q1

REPORT INFORMATION
  Report Type: Spontaneous
  Country: DE (occurrence: DE)
  Receive Date: 20240314
  Receipt Date: 20240314
  Transmission Date: 20240410
  Serious: Yes (Other)
  Sender: FDA-Public Use
  Company Number: None

PATIENT
  Age: 50 Year
  Sex: Female

DRUGS (9)
  1. QUETIAPINE [Suspect]
     Active Substance: QUETIAPINE
     Indication: Product used for unknown indication
     Dosage: 1 TABLET, 1 ONLY
     Route: 048
     Dates: start: 20230928, end: 20230928
  2. VALPROATE SODIUM [Suspect]
     Active Substance: VALPROATE SODIUM
     Indication: Product used for unknown indication
     Dosage: UNKNOWN QUANTITY OF TABLET(S) (MAINTENANCE MEDICATION), ORAL, QUESTIONABLE EXPOSURE
     Route: 048
     Dates: start: 20230928, end: 20230928
  3. SULPIRIDE [Suspect]
     Active Substance: SULPIRIDE
     Indication: Product used for unknown indication
     Dosage: UNKNOWN QUANTITY OF TABLET(S) (MAINTENANCE MEDICATION), ORAL, QUESTIONABLE EXPOSURE
     Route: 048
     Dates: start: 20230928, end: 20230928
  4. CHOLECALCIFEROL [Suspect]
     Active Substance: CHOLECALCIFEROL
     Indication: Product used for unknown indication
     Dosage: 1 TABLET, 1 ONLY
     Route: 048
     Dates: start: 20230928, end: 20230928
  5. AMLODIPINE [Suspect]
     Active Substance: AMLODIPINE BESYLATE
     Indication: Product used for unknown indication
     Dosage: UNK, 1 ONLY
     Route: 048
     Dates: start: 20230928, end: 20230928
  6. CANDESARTAN CILEXETIL\HYDROCHLOROTHIAZIDE [Suspect]
     Active Substance: CANDESARTAN CILEXETIL\HYDROCHLOROTHIAZIDE
     Indication: Product used for unknown indication
     Dosage: UNKNOWN QUANTITY OF TABLET(S) (MAINTENANCE MEDICATION), ORAL, QUESTIONABLE EXPOSURE
     Route: 048
     Dates: start: 20230928, end: 20230928
  7. DULOXETINE [Suspect]
     Active Substance: DULOXETINE
     Indication: Product used for unknown indication
     Dosage: UNKNOWN QUANTITY OF TABLET(S) (MAINTENANCE MEDICATION), ORAL, QUESTIONABLE EXPOSURE
     Route: 048
     Dates: start: 20230928, end: 20230928
  8. ELIQUIS [Suspect]
     Active Substance: APIXABAN
     Indication: Product used for unknown indication
     Dosage: 5 MILLIGRAM, 1 ONLY
     Route: 048
     Dates: start: 20230928, end: 20230928
  9. PIPAMPERONE [Suspect]
     Active Substance: PIPAMPERONE
     Indication: Product used for unknown indication
     Dosage: 2 TABLET, 1 ONLY (MIX UP)
     Route: 048
     Dates: start: 20230928, end: 20230928

REACTIONS (6)
  - Suicide attempt [Unknown]
  - Hypotension [Unknown]
  - Blood pressure systolic decreased [Unknown]
  - Somnolence [Unknown]
  - Electrocardiogram QT prolonged [Unknown]
  - Syncope [Unknown]

NARRATIVE: CASE EVENT DATE: 20230928
